FAERS Safety Report 20059147 (Version 1)
Quarter: 2021Q4

REPORT INFORMATION
  Report Type: Spontaneous
  Country: US (occurrence: None)
  Receive Date: 20211111
  Receipt Date: 20211111
  Transmission Date: 20220303
  Serious: No
  Sender: FDA-Public Use
  Company Number: US-ROCHE-2859526

PATIENT
  Sex: Male

DRUGS (2)
  1. GAVRETO [Suspect]
     Active Substance: PRALSETINIB
     Indication: Lung neoplasm malignant
     Route: 048
     Dates: start: 20210520
  2. MIRALAX [Concomitant]
     Active Substance: POLYETHYLENE GLYCOL 3350

REACTIONS (7)
  - Diarrhoea [Unknown]
  - Blood alkaline phosphatase decreased [Unknown]
  - Blood potassium increased [Recovering/Resolving]
  - Aspartate aminotransferase increased [Recovering/Resolving]
  - Protein total decreased [Unknown]
  - Fatigue [Unknown]
  - Blood pressure increased [Unknown]
